FAERS Safety Report 8484676-8 (Version None)
Quarter: 2012Q3

REPORT INFORMATION
  Report Type: 
  Country: None (occurrence: None)
  Receive Date: 20120703
  Receipt Date: 20120625
  Transmission Date: 20120928
  Serious: Yes (Death, Hospitalization)
  Sender: FDA-Public Use
  Company Number: FR-BRISTOL-MYERS SQUIBB COMPANY-16712630

PATIENT
  Age: 46 Year
  Sex: Male

DRUGS (6)
  1. MORPHINE SULFATE [Suspect]
     Indication: CANCER PAIN
     Dosage: ALSO RECEIVED 30MG
     Route: 048
     Dates: start: 20120101, end: 20120505
  2. FLUOROURACIL [Suspect]
     Dosage: NO OF COURSE:2
     Dates: start: 20120505
  3. CISPLATIN [Suspect]
     Dosage: NO OF COURSE:2
     Dates: start: 20120505
  4. ERBITUX [Suspect]
     Dosage: NO OF COURSE:2
     Dates: start: 20120505
  5. ORAMORPH SR [Suspect]
     Indication: CANCER PAIN
     Dosage: 1 DF = 40 TO 60 MG,ALSO RECEIVED 260MG,20MG
     Route: 048
  6. METHADONE HCL [Suspect]
     Indication: CANCER PAIN
     Dosage: METHADONE AP-HP,ALSO RECEIVED 40MG
     Route: 048
     Dates: start: 20120506

REACTIONS (2)
  - DEATH [None]
  - DYSPNOEA [None]
